FAERS Safety Report 7290067-8 (Version None)
Quarter: 2011Q1

REPORT INFORMATION
  Report Type: 
  Country: None (occurrence: None)
  Receive Date: 20110214
  Receipt Date: 20110203
  Transmission Date: 20110831
  Serious: Yes (Hospitalization, Other)
  Sender: FDA-Public Use
  Company Number: US-ELI_LILLY_AND_COMPANY-US201102000627

PATIENT
  Sex: Female

DRUGS (8)
  1. NOVOLOG [Concomitant]
     Dates: start: 20090101
  2. HUMALOG MIX 75/25 [Suspect]
     Dosage: 25 U, EACH EVENING
  3. HUMALOG MIX 75/25 [Suspect]
     Dosage: 10 U, EACH MORNING
  4. GLYBURIDE [Concomitant]
     Indication: TYPE 2 DIABETES MELLITUS
     Dosage: 10 MG, 2/D
  5. HUMALOG [Suspect]
  6. HUMALOG MIX 75/25 [Suspect]
     Dosage: 18 U, EACH EVENING
     Dates: start: 20050101
  7. HUMALOG MIX 75/25 [Suspect]
     Indication: TYPE 2 DIABETES MELLITUS
     Dosage: 20 U, EACH MORNING
     Dates: start: 20050101
  8. HUMALOG MIX 75/25 [Suspect]
     Dosage: UNK, AS NEEDED
     Dates: start: 20110104

REACTIONS (7)
  - BLOOD GLUCOSE DECREASED [None]
  - RETINAL HAEMORRHAGE [None]
  - BLINDNESS UNILATERAL [None]
  - HOSPITALISATION [None]
  - EYE DISORDER [None]
  - BLOOD GLUCOSE INCREASED [None]
  - INTERCEPTED DRUG DISPENSING ERROR [None]
